FAERS Safety Report 25367678 (Version 1)
Quarter: 2025Q2

REPORT INFORMATION
  Report Type: Spontaneous
  Country: US (occurrence: US)
  Receive Date: 20250528
  Receipt Date: 20250528
  Transmission Date: 20250716
  Serious: No
  Sender: ABBVIE
  Company Number: US-ABBVIE-6297518

PATIENT
  Sex: Female
  Weight: 50 kg

DRUGS (1)
  1. QULIPTA [Suspect]
     Active Substance: ATOGEPANT
     Indication: Migraine
     Dosage: FORM STRENGTH 60 MILLIGRAM
     Route: 048

REACTIONS (2)
  - Anxiety [Unknown]
  - Feeling abnormal [Unknown]
